FAERS Safety Report 7511262-6 (Version None)
Quarter: 2011Q2

REPORT INFORMATION
  Report Type: 
  Country: None (occurrence: None)
  Receive Date: 20110531
  Receipt Date: 20110511
  Transmission Date: 20111010
  Serious: Yes (Other)
  Sender: FDA-Public Use
  Company Number: US-BAYER-201041751NA

PATIENT
  Age: 18 Year
  Sex: Female
  Weight: 68.027 kg

DRUGS (3)
  1. MULTI-VITAMIN [Concomitant]
  2. YAZ [Suspect]
     Dosage: 1 DF, QD
     Dates: start: 20080614, end: 20090501
  3. YAZ [Suspect]
     Indication: PREMENSTRUAL SYNDROME
     Route: 048
     Dates: start: 20081107

REACTIONS (4)
  - CHOLECYSTITIS CHRONIC [None]
  - PAIN [None]
  - BILIARY DYSKINESIA [None]
  - ABDOMINAL PAIN [None]
